FAERS Safety Report 16321472 (Version 1)
Quarter: 2019Q2

REPORT INFORMATION
  Report Type: Report from Study
  Country: CA (occurrence: CA)
  Receive Date: 20190516
  Receipt Date: 20190516
  Transmission Date: 20190711
  Serious: Yes (Other)
  Sender: FDA-Public Use
  Company Number: CA-BAYER-2019-092528

PATIENT
  Age: 64 Year
  Sex: Female

DRUGS (1)
  1. STIVARGA [Suspect]
     Active Substance: REGORAFENIB
     Indication: COLORECTAL CANCER METASTATIC
     Dates: start: 20190313, end: 201905

REACTIONS (8)
  - Haematemesis [None]
  - Gait disturbance [None]
  - Cough [None]
  - Haemoptysis [None]
  - Diarrhoea [None]
  - White blood cell count increased [None]
  - Nasopharyngitis [None]
  - Decreased appetite [None]

NARRATIVE: CASE EVENT DATE: 2019
